FAERS Safety Report 5199909-3 (Version None)
Quarter: 2007Q1

REPORT INFORMATION
  Report Type: 
  Country: None (occurrence: None)
  Receive Date: 20070103
  Receipt Date: 20061222
  Transmission Date: 20070707
  Serious: Yes (Death)
  Sender: FDA-Public Use
  Company Number: PAR_1189_2006

PATIENT
  Age: 63 Year
  Sex: Male

DRUGS (4)
  1. CLOZAPINE [Suspect]
     Indication: SCHIZOPHRENIA
     Dosage: 50 MD BID PO
     Route: 048
     Dates: start: 20060808, end: 20061206
  2. CLOZAPINE [Suspect]
     Indication: SCHIZOPHRENIA
     Dosage: 100 MG QHS PO
     Route: 048
     Dates: start: 20060706, end: 20060807
  3. CLOZAPINE [Suspect]
     Indication: SCHIZOPHRENIA
     Dosage: 50 MG BID PO
     Route: 048
     Dates: end: 20060705
  4. CLOZAPINE [Suspect]
     Indication: SCHIZOPHRENIA
     Dosage: DF QDAY PO
     Route: 048
     Dates: start: 20060101

REACTIONS (2)
  - CARDIAC FAILURE CONGESTIVE [None]
  - PNEUMONIA [None]
